FAERS Safety Report 8161265-6 (Version None)
Quarter: 2012Q1

REPORT INFORMATION
  Report Type: 
  Country: None (occurrence: None)
  Receive Date: 20120222
  Receipt Date: 20120222
  Transmission Date: 20120608
  Serious: Yes (Hospitalization, Other)
  Sender: FDA-Public Use
  Company Number: None

PATIENT

DRUGS (1)
  1. GEODON [Suspect]

REACTIONS (12)
  - MUSCULOSKELETAL PAIN [None]
  - FEELING ABNORMAL [None]
  - ANXIETY [None]
  - PRESYNCOPE [None]
  - DYSSTASIA [None]
  - CARDIAC DISORDER [None]
  - CHEST PAIN [None]
  - DRUG HYPERSENSITIVITY [None]
  - GASTROOESOPHAGEAL REFLUX DISEASE [None]
  - HYPOAESTHESIA [None]
  - OROPHARYNGEAL PAIN [None]
  - NECK PAIN [None]
